FAERS Safety Report 14496618 (Version 1)
Quarter: 2018Q1

REPORT INFORMATION
  Report Type: Spontaneous
  Country: FR (occurrence: FR)
  Receive Date: 20180207
  Receipt Date: 20180207
  Transmission Date: 20180509
  Serious: Yes (Life-Threatening, Hospitalization)
  Sender: FDA-Public Use
  Company Number: PHHY2018FR019191

PATIENT
  Age: 62 Year
  Sex: Female

DRUGS (2)
  1. SANDOSTATIN LAR DEPOT [Suspect]
     Active Substance: OCTREOTIDE ACETATE
     Indication: GASTRINOMA MALIGNANT
     Dosage: 30 MG, EVERY 28 DAYS
     Route: 030
     Dates: start: 201709
  2. AFINITOR [Suspect]
     Active Substance: EVEROLIMUS
     Indication: GASTRINOMA MALIGNANT
     Dosage: 1 DF, QD
     Route: 048
     Dates: start: 201709, end: 20171016

REACTIONS (1)
  - Encephalopathy [Recovered/Resolved]

NARRATIVE: CASE EVENT DATE: 201710
